FAERS Safety Report 16308828 (Version 3)
Quarter: 2019Q2

REPORT INFORMATION
  Report Type: Spontaneous
  Country: US (occurrence: US)
  Receive Date: 20190514
  Receipt Date: 20190628
  Transmission Date: 20190711
  Serious: Yes (Other)
  Sender: FDA-Public Use
  Company Number: US-PFIZER INC-2019199951

PATIENT
  Age: 82 Year
  Sex: Female
  Weight: 99.79 kg

DRUGS (1)
  1. LYRICA [Suspect]
     Active Substance: PREGABALIN
     Indication: PAIN
     Dosage: 100 MG, 2X/DAY
     Route: 048

REACTIONS (10)
  - Loss of personal independence in daily activities [Unknown]
  - Crying [Unknown]
  - Feeling abnormal [Unknown]
  - Depression [Recovered/Resolved]
  - Mood swings [Recovered/Resolved]
  - Asthenia [Unknown]
  - Apathy [Unknown]
  - Suicidal ideation [Unknown]
  - Emotional disorder [Unknown]
  - Pain [Recovered/Resolved]
